FAERS Safety Report 4824879-4 (Version None)
Quarter: 2005Q4

REPORT INFORMATION
  Report Type: 
  Country: None (occurrence: None)
  Receive Date: 20051012
  Receipt Date: 20050622
  Transmission Date: 20060501
  Serious: No
  Sender: FDA-Public Use
  Company Number: 2005S1000086

PATIENT
  Age: 74 Year
  Weight: 95.5 kg

DRUGS (11)
  1. CUBICIN [Suspect]
     Indication: CELLULITIS STAPHYLOCOCCAL
     Dosage: 380 MG; Q48H; IV
     Route: 042
     Dates: start: 20050505, end: 20050507
  2. LOPRESSOR [Concomitant]
  3. LOTREL [Concomitant]
  4. BUMEX [Concomitant]
  5. GLYBURIDE [Concomitant]
  6. LIPITOR [Concomitant]
  7. DDAVP [Concomitant]
  8. LEXAPRO [Concomitant]
  9. VANCOMYCIN [Concomitant]
  10. HEPARIN [Concomitant]
  11. NORMAL SALINE [Concomitant]

REACTIONS (6)
  - DIARRHOEA [None]
  - DIZZINESS [None]
  - DYSPNOEA [None]
  - FATIGUE [None]
  - NAUSEA [None]
  - NERVOUSNESS [None]
